FAERS Safety Report 9625819 (Version 6)
Quarter: 2014Q1

REPORT INFORMATION
  Report Type: Report from Study
  Country: GB (occurrence: GB)
  Receive Date: 20131016
  Receipt Date: 20140122
  Transmission Date: 20141002
  Serious: Yes (Hospitalization)
  Sender: FDA-Public Use
  Company Number: GB-B.I. PHARMACEUTICALS,INC./RIDGEFIELD-2013-BI-31071BI

PATIENT
  Age: 66 Year
  Sex: Female
  Weight: 99.6 kg

DRUGS (3)
  1. BIBW 2992 [Suspect]
     Indication: LUNG ADENOCARCINOMA
     Dosage: 30 MG
     Route: 048
     Dates: start: 20130927
  2. PACLITAXEL [Suspect]
     Indication: LUNG ADENOCARCINOMA
     Dosage: 365 MG
     Route: 042
     Dates: start: 20130926
  3. CARBOPLATIN [Suspect]
     Indication: LUNG ADENOCARCINOMA
     Dosage: 545 MG
     Route: 042
     Dates: start: 20130926

REACTIONS (1)
  - Escherichia sepsis [Recovered/Resolved]
